FAERS Safety Report 18262790 (Version 1)
Quarter: 2020Q3

REPORT INFORMATION
  Report Type: Spontaneous
  Country: US (occurrence: US)
  Receive Date: 20200914
  Receipt Date: 20200914
  Transmission Date: 20201103
  Serious: No
  Sender: FDA-Public Use
  Company Number: None

PATIENT
  Age: 70 Year
  Sex: Male
  Weight: 145.4 kg

DRUGS (3)
  1. REMDESIVIR. [Suspect]
     Active Substance: REMDESIVIR
     Indication: COVID-19
     Route: 042
     Dates: start: 20200910, end: 20200911
  2. HYDROCODONE/ACETAMINOPHEN 5/325 MG [Concomitant]
     Dates: start: 20200907, end: 20200910
  3. ACETAMINOPHEN 650 MG [Concomitant]
     Active Substance: ACETAMINOPHEN
     Dates: start: 20200911, end: 20200911

REACTIONS (3)
  - Hepatic function abnormal [None]
  - Hepatic enzyme increased [None]
  - Blood creatinine increased [None]

NARRATIVE: CASE EVENT DATE: 20200912
